FAERS Safety Report 13885652 (Version 2)
Quarter: 2017Q3

REPORT INFORMATION
  Report Type: Spontaneous
  Country: DE (occurrence: DE)
  Receive Date: 20170821
  Receipt Date: 20170829
  Transmission Date: 20171127
  Serious: Yes (Death, Life-Threatening, Hospitalization, Other)
  Sender: FDA-Public Use
  Company Number: DE-TEVA-797270GER

PATIENT
  Age: 55 Year
  Sex: Male
  Weight: 85 kg

DRUGS (3)
  1. CEFUROXIM ABZ 500 MG FILMTABLETTEN [Suspect]
     Active Substance: CEFUROXIME
     Indication: SINUSITIS
     Dosage: 1000 MILLIGRAM DAILY; 1-0-1
     Route: 048
     Dates: start: 20170725, end: 20170725
  2. SYMBICORT [Concomitant]
     Active Substance: BUDESONIDE\FORMOTEROL FUMARATE DIHYDRATE
     Indication: BRONCHITIS
     Dosage: 1-0-1
     Route: 055
  3. NASONEX 140 [Concomitant]
     Indication: SINUSITIS
     Dosage: 1-0-1
     Route: 045

REACTIONS (2)
  - Anaphylactic shock [Fatal]
  - Coma [Fatal]

NARRATIVE: CASE EVENT DATE: 201707
